FAERS Safety Report 20506500 (Version 2)
Quarter: 2022Q1

REPORT INFORMATION
  Report Type: Other
  Country: ES (occurrence: None)
  Receive Date: 20220223
  Receipt Date: 20220310
  Transmission Date: 20220424
  Serious: Yes (Other)
  Sender: FDA-Public Use
  Company Number: ES-ROCHE-3029057

PATIENT

DRUGS (1)
  1. ALTEPLASE [Suspect]
     Active Substance: ALTEPLASE
     Indication: Ischaemic stroke
     Dosage: 0.225 MG/KG?(MAXIMUM DOSE, 22.5 MG) INFUSED OVER 30 MINUTES (AT TRIAL?ONSET) OR OVER 15 MINUTES
     Route: 013

REACTIONS (27)
  - Cerebral haemorrhage [Unknown]
  - Subarachnoid haemorrhage [Unknown]
  - Atrioventricular block second degree [Unknown]
  - Cardiac arrest [Unknown]
  - Cerebrovascular accident [Unknown]
  - Cerebral thrombosis [Unknown]
  - Epilepsy [Unknown]
  - Cerebrovascular accident [Unknown]
  - Syncope [Unknown]
  - Atrial fibrillation [Unknown]
  - Cardiac failure [Unknown]
  - Neurological symptom [Unknown]
  - Cellulitis [Unknown]
  - Bacteraemia [Unknown]
  - Staphylococcal infection [Unknown]
  - Thoracic haemorrhage [Unknown]
  - Diabetes mellitus [Unknown]
  - Craniocerebral injury [Unknown]
  - Deep vein thrombosis [Unknown]
  - Hyperkalaemia [Unknown]
  - Urinary retention [Unknown]
  - Hypoxia [Unknown]
  - Pneumonia aspiration [Unknown]
  - Pulmonary embolism [Unknown]
  - Cerebral thrombosis [Unknown]
  - Myocardial infarction [Unknown]
  - Cardiac failure [Unknown]
